FAERS Safety Report 8013934-6 (Version None)
Quarter: 2011Q4

REPORT INFORMATION
  Report Type: 
  Country: None (occurrence: None)
  Receive Date: 20111229
  Receipt Date: 20111221
  Transmission Date: 20120403
  Serious: Yes (Other)
  Sender: FDA-Public Use
  Company Number: PHEH2011US012351

PATIENT
  Sex: Male
  Weight: 100.5 kg

DRUGS (16)
  1. AMBIEN [Concomitant]
     Dosage: 10 MG, PRN
     Route: 048
  2. NOVOLOG [Concomitant]
  3. VESICARE [Concomitant]
  4. PANTOPRAZOLE [Concomitant]
     Dosage: 40 MG, DAILY
     Route: 048
  5. FLOMAX [Concomitant]
     Dosage: 0.8 MG, UNK
     Route: 048
  6. MACROBID [Concomitant]
  7. ATENOLOL [Concomitant]
     Dosage: 50 MG, UNK
     Route: 048
  8. DOXORUBICIN HCL [Concomitant]
     Dosage: 8 COURSES
     Dates: end: 20110425
  9. EXJADE [Suspect]
     Dosage: 1500 MG, UNK
     Route: 048
     Dates: end: 20110930
  10. ONCOVIN [Concomitant]
     Dosage: 8 COURSES
     Dates: end: 20110425
  11. PREDNISONE TAB [Concomitant]
     Dosage: 8 COURSES
     Dates: end: 20110425
  12. LANTUS [Concomitant]
     Dosage: 34 U, UNK
     Route: 058
  13. LASIX [Concomitant]
     Dosage: 20 MG, PRN
     Route: 048
  14. LYRICA [Concomitant]
  15. RITUXIMAB [Concomitant]
     Dosage: 8 COURSES
     Dates: end: 20110425
  16. CYCLOPHOSPHAMIDE [Concomitant]
     Dosage: 8 COURSES
     Dates: end: 20110425

REACTIONS (16)
  - RASH [None]
  - JAUNDICE [None]
  - NAUSEA [None]
  - MARROW HYPERPLASIA [None]
  - FEBRILE NEUTROPENIA [None]
  - HERPES ZOSTER [None]
  - DRUG INTOLERANCE [None]
  - RED BLOOD CELL SEDIMENTATION RATE INCREASED [None]
  - FATIGUE [None]
  - BONE MARROW FAILURE [None]
  - BLOOD PRESSURE DECREASED [None]
  - WEIGHT INCREASED [None]
  - ERYTHROID MATURATION ARREST [None]
  - DECREASED APPETITE [None]
  - PYREXIA [None]
  - DIARRHOEA [None]
